FAERS Safety Report 23905828 (Version 1)
Quarter: 2024Q2

REPORT INFORMATION
  Report Type: Spontaneous
  Country: VN (occurrence: VN)
  Receive Date: 20240527
  Receipt Date: 20240527
  Transmission Date: 20240716
  Serious: Yes (Other)
  Sender: FDA-Public Use
  Company Number: VN-002147023-NVSC2024VN107872

PATIENT
  Age: 58 Year
  Sex: Male

DRUGS (1)
  1. CERITINIB [Suspect]
     Active Substance: CERITINIB
     Indication: Lung neoplasm malignant
     Dosage: 300 MG, QD
     Route: 065

REACTIONS (4)
  - Pleural effusion [Unknown]
  - Atelectasis [Unknown]
  - Therapy partial responder [Unknown]
  - Off label use [Unknown]
